FAERS Safety Report 17382017 (Version 1)
Quarter: 2020Q1

REPORT INFORMATION
  Report Type: Spontaneous
  Country: PL (occurrence: PL)
  Receive Date: 20200206
  Receipt Date: 20200206
  Transmission Date: 20200409
  Serious: Yes (Hospitalization)
  Sender: FDA-Public Use
  Company Number: PL-MYLANLABS-2020M1013048

PATIENT
  Age: 63 Year
  Sex: Male

DRUGS (8)
  1. OXYCODONE [Suspect]
     Active Substance: OXYCODONE
     Dosage: 80 MILLIGRAM, QD
     Route: 065
  2. MORPHINE SULFATE. [Suspect]
     Active Substance: MORPHINE SULFATE
     Indication: PAIN
     Dosage: UNK
     Route: 065
  3. BUPRENORPHINE. [Suspect]
     Active Substance: BUPRENORPHINE
     Indication: PAIN
     Dosage: 1 DOSAGE FORM=MILIGRAMS PER HOUR
     Route: 062
  4. PREGABALIN. [Suspect]
     Active Substance: PREGABALIN
     Indication: BREAKTHROUGH PAIN
     Dosage: 75 MILLIGRAM, BID (150 MILLIGRAM DAILY;)
     Route: 065
  5. OXYCODONE [Suspect]
     Active Substance: OXYCODONE
     Dosage: 40 MILLIGRAM, BID (80 MILLIGRAM DAILY)
  6. BUPRENORPHINE. [Suspect]
     Active Substance: BUPRENORPHINE
     Dosage: 1 DOSAGE FORM=MILIGRAMS PER HOUR
     Route: 062
  7. OXYCODONE [Suspect]
     Active Substance: OXYCODONE
     Indication: PAIN
     Dosage: 120 MILLIGRAM, QD
     Route: 065
  8. MORPHINE SULFATE. [Suspect]
     Active Substance: MORPHINE SULFATE
     Indication: BREAKTHROUGH PAIN
     Dosage: 10 MILLIGRAM
     Route: 058

REACTIONS (7)
  - Nausea [Recovering/Resolving]
  - Drug intolerance [Unknown]
  - Dry mouth [Recovering/Resolving]
  - Dysarthria [Recovering/Resolving]
  - Therapy partial responder [Unknown]
  - Somnolence [Recovered/Resolved]
  - Tremor [Recovering/Resolving]
